FAERS Safety Report 7085412-2 (Version None)
Quarter: 2010Q4

REPORT INFORMATION
  Report Type: 
  Country: None (occurrence: None)
  Receive Date: 20101105
  Receipt Date: 20101028
  Transmission Date: 20110411
  Serious: Yes (Other)
  Sender: FDA-Public Use
  Company Number: AU-PFIZER INC-2010118321

PATIENT
  Age: 59 Year
  Sex: Male
  Weight: 75 kg

DRUGS (3)
  1. CHAMPIX [Suspect]
     Indication: SMOKING CESSATION THERAPY
     Dosage: 1 MG, 2X/DAY
     Route: 048
     Dates: start: 20100719, end: 20100726
  2. ALCOHOL [Concomitant]
     Dosage: UNK
  3. PARIET [Concomitant]
     Indication: DYSPEPSIA
     Dosage: 20 MG, 1X/DAY
     Route: 048

REACTIONS (5)
  - AGGRESSION [None]
  - AGITATION [None]
  - DEPRESSION [None]
  - MEMORY IMPAIRMENT [None]
  - RESTLESSNESS [None]
